FAERS Safety Report 11072412 (Version 1)
Quarter: 2015Q2

REPORT INFORMATION
  Report Type: Spontaneous
  Country: US (occurrence: None)
  Receive Date: 20150427
  Receipt Date: 20150427
  Transmission Date: 20150821
  Serious: Yes (Disabling, Other)
  Sender: FDA-Public Use
  Company Number: None

PATIENT
  Age: 40 Year
  Sex: Female

DRUGS (2)
  1. IMITREX [Concomitant]
     Active Substance: SUMATRIPTAN\SUMATRIPTAN SUCCINATE
  2. CONTRAVE [Suspect]
     Active Substance: BUPROPION HYDROCHLORIDE\NALTREXONE HYDROCHLORIDE
     Indication: WEIGHT CONTROL
     Dosage: 1 PILL, ONCE DAILY, MOUTH
     Route: 048
     Dates: start: 20150406, end: 20150407

REACTIONS (14)
  - Nausea [None]
  - Malaise [None]
  - Myalgia [None]
  - Chills [None]
  - Photophobia [None]
  - Pyrexia [None]
  - Hepatic infection [None]
  - Pain [None]
  - Hepatic enzyme increased [None]
  - Migraine [None]
  - Fatigue [None]
  - Impaired work ability [None]
  - Vomiting [None]
  - Swelling [None]

NARRATIVE: CASE EVENT DATE: 20150414
